FAERS Safety Report 4367022-0 (Version None)
Quarter: 2004Q2

REPORT INFORMATION
  Report Type: 
  Country: None (occurrence: None)
  Receive Date: 20040527
  Receipt Date: 20040527
  Transmission Date: 20050107
  Serious: Yes (Life-Threatening, Hospitalization, Disabling)
  Sender: FDA-Public Use
  Company Number: None

PATIENT
  Age: 42 Year
  Sex: Male
  Weight: 96.1626 kg

DRUGS (1)
  1. KENALOG [Suspect]
     Indication: BURSITIS
     Dosage: 40 MG INTO BURSA
     Dates: start: 20040414

REACTIONS (3)
  - DILATATION VENTRICULAR [None]
  - PULMONARY EMBOLISM [None]
  - PULMONARY HYPERTENSION [None]
